FAERS Safety Report 4893558-X (Version None)
Quarter: 2006Q1

REPORT INFORMATION
  Report Type: 
  Country: None (occurrence: None)
  Receive Date: 20060127
  Receipt Date: 20060116
  Transmission Date: 20060701
  Serious: Yes (Life-Threatening)
  Sender: FDA-Public Use
  Company Number: CN-BRISTOL-MYERS SQUIBB COMPANY-13248794

PATIENT

DRUGS (1)
  1. MAXIPIME [Suspect]
     Dates: start: 20060109

REACTIONS (1)
  - INFUSION RELATED REACTION [None]
